FAERS Safety Report 5853444-5 (Version None)
Quarter: 2008Q3

REPORT INFORMATION
  Report Type: 
  Country: None (occurrence: None)
  Receive Date: 20080820
  Receipt Date: 20080812
  Transmission Date: 20090109
  Serious: Yes (Other)
  Sender: FDA-Public Use
  Company Number: GXKR2008NL07615

PATIENT
  Age: 32 Year
  Sex: Female

DRUGS (7)
  1. PREDNISONE [Suspect]
     Indication: T-CELL LYMPHOMA
     Dosage: 8 CHOP CYCLES, 14 DAY INTERVALS, UNKNOWN
     Dates: end: 20060301
  2. ALEMTUZUMAB (ALEMTUZUMAB, CAMPATH-TH) [Suspect]
     Indication: T-CELL LYMPHOMA
     Dosage: 30 MG, 3 DOSES PER CHOP-CYCLE, UNKNOWN
     Dates: end: 20060301
  3. CYCLOPHOSPHAMIDE [Suspect]
     Indication: T-CELL LYMPHOMA
     Dosage: 8 CHOPCYCLES, 14 DAY INTERVALS, UNKNOWN
     Dates: end: 20060301
  4. ADRIAMYCIN PFS [Suspect]
     Indication: T-CELL LYMPHOMA
     Dosage: 8 CHOP CYCLES, 14 DAY INTERVALS, UNKNOWN
     Dates: end: 20060301
  5. ONCOVIN [Suspect]
     Indication: T-CELL LYMPHOMA
     Dosage: 8 CHOP CYCLES, 14 DAY INTERVALS, UNKNOWN
     Dates: end: 20060301
  6. CO-TRIMOXAZOLE [Concomitant]
  7. VALACYCLOVIR HCL [Concomitant]

REACTIONS (7)
  - BRAIN NEOPLASM [None]
  - DIFFUSE LARGE B-CELL LYMPHOMA [None]
  - EPILEPSY [None]
  - EPSTEIN-BARR VIRUS TEST POSITIVE [None]
  - LYMPHOPROLIFERATIVE DISORDER [None]
  - PERIPHERAL T-CELL LYMPHOMA UNSPECIFIED RECURRENT [None]
  - SKIN LESION [None]
